FAERS Safety Report 4986951-8 (Version None)
Quarter: 2006Q2

REPORT INFORMATION
  Report Type: 
  Country: None (occurrence: None)
  Receive Date: 20060427
  Receipt Date: 20060427
  Transmission Date: 20061013
  Serious: Yes (Other)
  Sender: FDA-Public Use
  Company Number: None

PATIENT
  Age: 47 Year
  Sex: Male
  Weight: 90.9 kg

DRUGS (2)
  1. BCG VACCINE-AVENTIS PASTEUR [Suspect]
     Indication: BLADDER CANCER
     Dosage: 81 MG ONCE INTRAVESICAL
     Route: 043
     Dates: start: 20060329
  2. BCG VACCINE-AVENTIS PASTEUR [Suspect]

REACTIONS (2)
  - DYSPNOEA [None]
  - PYREXIA [None]
